FAERS Safety Report 4885382-9 (Version None)
Quarter: 2005Q4

REPORT INFORMATION
  Report Type: 
  Country: None (occurrence: None)
  Receive Date: 20051222
  Receipt Date: 20050512
  Transmission Date: 20060501
  Serious: Yes (Other)
  Sender: FDA-Public Use
  Company Number: 200504044

PATIENT
  Age: 56 Year
  Sex: Female

DRUGS (4)
  1. ELESTAT [Suspect]
     Indication: HYPERSENSITIVITY
     Dosage: 2 DROP ONCE EYE
  2. TOPROL-XL [Concomitant]
  3. HYZAAR [Concomitant]
  4. VASOTEC [Concomitant]

REACTIONS (1)
  - DIZZINESS [None]
